FAERS Safety Report 13778581 (Version 2)
Quarter: 2017Q3

REPORT INFORMATION
  Report Type: Spontaneous
  Country: US (occurrence: US)
  Receive Date: 20170721
  Receipt Date: 20170821
  Transmission Date: 20171127
  Serious: No
  Sender: FDA-Public Use
  Company Number: US-ASTRAZENECA-2017SE74340

PATIENT
  Age: 60 Year
  Sex: Female
  Weight: 122.5 kg

DRUGS (1)
  1. PULMICORT FLEXHALER [Suspect]
     Active Substance: BUDESONIDE
     Indication: ASTHMA
     Dosage: 180 MCG, 2 INHALATIONS ONCE A DAY
     Route: 055
     Dates: start: 2015

REACTIONS (5)
  - Wrong technique in product usage process [Unknown]
  - Memory impairment [Unknown]
  - Intentional device misuse [Unknown]
  - Off label use [Unknown]
  - Product quality issue [Unknown]

NARRATIVE: CASE EVENT DATE: 2015
